FAERS Safety Report 8336081-2 (Version None)
Quarter: 2012Q2

REPORT INFORMATION
  Report Type: 
  Country: None (occurrence: None)
  Receive Date: 20120504
  Receipt Date: 20120423
  Transmission Date: 20120825
  Serious: Yes (Hospitalization, Other)
  Sender: FDA-Public Use
  Company Number: US-JNJFOC-20120410957

PATIENT
  Sex: Female
  Weight: 49.9 kg

DRUGS (4)
  1. LYRICA [Suspect]
     Indication: FIBROMYALGIA
     Route: 048
     Dates: end: 20120301
  2. DURAGESIC-100 [Suspect]
     Indication: BONE DISORDER
     Route: 062
     Dates: start: 20120201
  3. DURAGESIC-100 [Suspect]
     Route: 062
     Dates: start: 20110101, end: 20110201
  4. HYDROCODONE [Concomitant]
     Indication: PAIN
     Route: 048

REACTIONS (6)
  - PRODUCT QUALITY ISSUE [None]
  - BIPOLAR DISORDER [None]
  - THERAPEUTIC RESPONSE DECREASED [None]
  - PAIN [None]
  - DEPRESSION [None]
  - WEIGHT INCREASED [None]
